FAERS Safety Report 6871978-1 (Version None)
Quarter: 2010Q3

REPORT INFORMATION
  Report Type: 
  Country: None (occurrence: None)
  Receive Date: 20100723
  Receipt Date: 20100712
  Transmission Date: 20110219
  Serious: Yes (Other)
  Sender: FDA-Public Use
  Company Number: GB-PFIZER INC-2010086868

PATIENT

DRUGS (1)
  1. LYRICA [Suspect]

REACTIONS (1)
  - CARDIAC FAILURE [None]
